FAERS Safety Report 9322531 (Version 2)
Quarter: 2013Q2

REPORT INFORMATION
  Report Type: Spontaneous
  Country: JP (occurrence: JP)
  Receive Date: 20130531
  Receipt Date: 20130610
  Transmission Date: 20140414
  Serious: Yes (Hospitalization, Other)
  Sender: FDA-Public Use
  Company Number: JP-ASTRAZENECA-2013SE36345

PATIENT
  Age: 65 Year
  Sex: Male

DRUGS (4)
  1. TENORMIN [Suspect]
     Indication: ANGINA PECTORIS
     Route: 048
  2. EQUA [Interacting]
     Route: 048
  3. ASPIRIN [Concomitant]
  4. MECOBALAMIN [Concomitant]

REACTIONS (4)
  - Drug interaction [Recovered/Resolved]
  - Hypoglycaemia [Recovered/Resolved]
  - Altered state of consciousness [Recovered/Resolved]
  - Convulsion [Recovered/Resolved]
